FAERS Safety Report 17949501 (Version 1)
Quarter: 2020Q2

REPORT INFORMATION
  Report Type: Spontaneous
  Country: US (occurrence: US)
  Receive Date: 20200625
  Receipt Date: 20200625
  Transmission Date: 20200714
  Serious: No
  Sender: FDA-Public Use
  Company Number: US-ASTRAZENECA-2020SE79167

PATIENT
  Age: 33116 Day
  Sex: Male

DRUGS (4)
  1. SYMBICORT [Suspect]
     Active Substance: BUDESONIDE\FORMOTEROL FUMARATE DIHYDRATE
     Indication: EATING DISORDER
     Dosage: NEW SYMBICORT INHALER AND BELIEVES HE MAY HAVE USED TOO MUCH UNKNOWN
     Route: 055
     Dates: start: 20200618
  2. SYMBICORT [Suspect]
     Active Substance: BUDESONIDE\FORMOTEROL FUMARATE DIHYDRATE
     Indication: EATING DISORDER
     Dosage: 2 PUFFS, TWICE DAILY FOR MANY YEARS
     Route: 055
  3. SYMBICORT [Suspect]
     Active Substance: BUDESONIDE\FORMOTEROL FUMARATE DIHYDRATE
     Indication: OROPHARYNGEAL DISCOMFORT
     Dosage: NEW SYMBICORT INHALER AND BELIEVES HE MAY HAVE USED TOO MUCH UNKNOWN
     Route: 055
     Dates: start: 20200618
  4. SYMBICORT [Suspect]
     Active Substance: BUDESONIDE\FORMOTEROL FUMARATE DIHYDRATE
     Indication: OROPHARYNGEAL DISCOMFORT
     Dosage: 2 PUFFS, TWICE DAILY FOR MANY YEARS
     Route: 055

REACTIONS (7)
  - Neck pain [Unknown]
  - Arthritis [Unknown]
  - Incorrect dose administered [Unknown]
  - Product use in unapproved indication [Not Recovered/Not Resolved]
  - Back pain [Unknown]
  - Hypophagia [Unknown]
  - Pruritus [Not Recovered/Not Resolved]

NARRATIVE: CASE EVENT DATE: 20200618
